FAERS Safety Report 23949641 (Version 2)
Quarter: 2024Q2

REPORT INFORMATION
  Report Type: Spontaneous
  Country: LT (occurrence: LT)
  Receive Date: 20240607
  Receipt Date: 20240610
  Transmission Date: 20240716
  Serious: Yes (Life-Threatening, Hospitalization, Disabling, Other)
  Sender: FDA-Public Use
  Company Number: LT-009507513-2405LTU006947

PATIENT
  Age: 48 Year
  Sex: Male
  Weight: 72 kg

DRUGS (2)
  1. ABACAVIR SULFATE\LAMIVUDINE [Suspect]
     Active Substance: ABACAVIR SULFATE\LAMIVUDINE
     Indication: Product used for unknown indication
     Dosage: 600 MG/300 MG, QD
     Route: 065
     Dates: start: 2018, end: 202311
  2. RALTEGRAVIR POTASSIUM [Suspect]
     Active Substance: RALTEGRAVIR POTASSIUM
     Indication: HIV infection
     Dosage: 800 MILLIGRAM, QD (400 MG 2X DAY)
     Route: 048
     Dates: start: 20180502, end: 20231123

REACTIONS (6)
  - Cerebral artery stenosis [Recovering/Resolving]
  - Cerebral artery occlusion [Recovering/Resolving]
  - Cerebral infarction [Recovering/Resolving]
  - Weight increased [Not Recovered/Not Resolved]
  - CD4 lymphocytes increased [Unknown]
  - Hypertension [Unknown]

NARRATIVE: CASE EVENT DATE: 20200207
